FAERS Safety Report 9404646 (Version 1)
Quarter: 2013Q3

REPORT INFORMATION
  Report Type: Spontaneous
  Country: US (occurrence: None)
  Receive Date: 20130716
  Receipt Date: 20130716
  Transmission Date: 20140515
  Serious: Yes (Hospitalization)
  Sender: FDA-Public Use
  Company Number: None

PATIENT
  Age: 88 Year
  Sex: Male
  Weight: 76.8 kg

DRUGS (2)
  1. NAFCILLIN [Suspect]
     Indication: STAPHYLOCOCCAL INFECTION
     Route: 042
     Dates: start: 20130427, end: 20130503
  2. NAFCILLIN [Suspect]
     Indication: BACTERAEMIA
     Route: 042
     Dates: start: 20130427, end: 20130503

REACTIONS (1)
  - Diarrhoea [None]
